FAERS Safety Report 7366854-4 (Version None)
Quarter: 2011Q1

REPORT INFORMATION
  Report Type: 
  Country: None (occurrence: None)
  Receive Date: 20110322
  Receipt Date: 20110314
  Transmission Date: 20110831
  Serious: Yes (Death, Hospitalization)
  Sender: FDA-Public Use
  Company Number: A0849313A

PATIENT
  Age: 71 Year
  Sex: Male

DRUGS (4)
  1. AVANDAMET [Suspect]
     Indication: DIABETES MELLITUS
     Route: 048
     Dates: start: 20030214, end: 20030307
  2. NORVASC [Concomitant]
  3. ALTACE [Concomitant]
  4. DIABETA [Concomitant]

REACTIONS (3)
  - DEATH [None]
  - CARDIOVASCULAR DISORDER [None]
  - CARDIAC FAILURE CONGESTIVE [None]
